FAERS Safety Report 4976779-7 (Version None)
Quarter: 2006Q2

REPORT INFORMATION
  Report Type: 
  Country: None (occurrence: None)
  Receive Date: 20060419
  Receipt Date: 20060406
  Transmission Date: 20061013
  Serious: Yes (Hospitalization)
  Sender: FDA-Public Use
  Company Number: FR-GLAXOSMITHKLINE-B0420485A

PATIENT
  Age: 47 Year
  Sex: Female

DRUGS (17)
  1. TAGAMET [Suspect]
     Indication: DRUG USE FOR UNKNOWN INDICATION
     Dosage: 120MG UNKNOWN
     Route: 048
     Dates: start: 20060127, end: 20060127
  2. GENTAMICIN [Suspect]
     Indication: DRUG USE FOR UNKNOWN INDICATION
     Route: 042
     Dates: start: 20060127, end: 20060128
  3. FLAGYL [Suspect]
     Indication: DRUG USE FOR UNKNOWN INDICATION
     Dosage: .5U UNKNOWN
     Route: 042
     Dates: start: 20060127, end: 20060128
  4. DALACINE [Suspect]
     Indication: DRUG USE FOR UNKNOWN INDICATION
     Dosage: 600MG TWICE PER DAY
     Route: 042
     Dates: start: 20060127, end: 20060128
  5. ACETAMINOPHEN [Suspect]
     Indication: DRUG USE FOR UNKNOWN INDICATION
     Route: 042
     Dates: start: 20060127, end: 20060128
  6. ACUPAN [Suspect]
     Indication: DRUG USE FOR UNKNOWN INDICATION
     Dosage: 20MG UNKNOWN
     Route: 042
     Dates: start: 20060127, end: 20060128
  7. CELOCURINE [Concomitant]
  8. NIMBEX [Concomitant]
  9. RINGER'S [Concomitant]
  10. DROLEPTAN [Concomitant]
  11. THIOPENTAL SODIUM [Concomitant]
  12. MORPHINE [Concomitant]
  13. ULTIVA [Concomitant]
  14. ATROPINE [Concomitant]
  15. ZOPHREN [Concomitant]
  16. PROSTIGMINE [Concomitant]
  17. VOLUVEN [Concomitant]

REACTIONS (3)
  - ACUTE GENERALISED EXANTHEMATOUS PUSTULOSIS [None]
  - DERMATITIS ALLERGIC [None]
  - PYREXIA [None]
